FAERS Safety Report 7275460-1 (Version None)
Quarter: 2011Q1

REPORT INFORMATION
  Report Type: 
  Country: None (occurrence: None)
  Receive Date: 20110204
  Receipt Date: 20110127
  Transmission Date: 20110831
  Serious: Yes (Hospitalization)
  Sender: FDA-Public Use
  Company Number: US-ROCHE-756646

PATIENT
  Sex: Male

DRUGS (10)
  1. OXALIPLATIN [Suspect]
     Dosage: MANUFACTURED BY SUN PHARMACEUTICALS; EIGHTH CYCLE RECEIVED ON 13 JAN 2011
     Route: 051
     Dates: start: 20101201
  2. COMPAZINE [Concomitant]
  3. OXALIPLATIN [Suspect]
     Indication: RECTAL CANCER STAGE III
     Dosage: CYCLES
     Route: 051
     Dates: start: 20101006
  4. ALEVE [Concomitant]
  5. ALOXI [Concomitant]
  6. PROTONIX [Concomitant]
  7. XELODA [Suspect]
     Indication: RECTAL CANCER STAGE III
     Dosage: SEVEN DAYS ON AND SEVEN DAYS OFF
     Route: 065
     Dates: start: 20100604
  8. CALCIUM [Concomitant]
  9. DECADRON [Concomitant]
  10. MAGNESIUM [Concomitant]

REACTIONS (3)
  - FAECAL VOLUME DECREASED [None]
  - ABDOMINAL PAIN [None]
  - PANCREATITIS [None]
